FAERS Safety Report 15832039 (Version 1)
Quarter: 2019Q1

REPORT INFORMATION
  Report Type: Spontaneous
  Country: US (occurrence: US)
  Receive Date: 20190116
  Receipt Date: 20190116
  Transmission Date: 20190417
  Serious: Yes (Hospitalization)
  Sender: FDA-Public Use
  Company Number: US-SAKK-2019SA011486AA

PATIENT
  Age: 77 Year
  Sex: Female

DRUGS (2)
  1. TADALAFIL. [Concomitant]
     Active Substance: TADALAFIL
  2. PRALUENT [Suspect]
     Active Substance: ALIROCUMAB
     Indication: PULMONARY ARTERIAL HYPERTENSION
     Dosage: 75 MG, QOW
     Route: 058
     Dates: start: 20190104

REACTIONS (2)
  - Product use in unapproved indication [Unknown]
  - Haemoglobin decreased [Not Recovered/Not Resolved]

NARRATIVE: CASE EVENT DATE: 20190105
